FAERS Safety Report 11664924 (Version 7)
Quarter: 2016Q1

REPORT INFORMATION
  Report Type: Other
  Country: FR (occurrence: FR)
  Receive Date: 20151027
  Receipt Date: 20160308
  Transmission Date: 20160525
  Serious: Yes (Disabling, Other)
  Sender: FDA-Public Use
  Company Number: FR-ASTELLAS-2015US037491

PATIENT
  Age: 47 Year
  Sex: Male

DRUGS (3)
  1. VESICARE [Suspect]
     Active Substance: SOLIFENACIN SUCCINATE
     Indication: URINARY INCONTINENCE
     Dosage: 1 DF THE EVENING, ONCE DAILY
     Route: 048
     Dates: start: 20150521, end: 20150812
  2. VESICARE [Suspect]
     Active Substance: SOLIFENACIN SUCCINATE
     Indication: URINARY INCONTINENCE
     Route: 048
     Dates: start: 20150813, end: 20150813
  3. EPITOMAX [Concomitant]
     Active Substance: TOPIRAMATE
     Indication: EPILEPSY
     Dosage: 100 IN THE MORNING AND 150 IN THE EVENING
     Route: 048
     Dates: start: 2005

REACTIONS (6)
  - Condition aggravated [Recovering/Resolving]
  - Hypotonia [Not Recovered/Not Resolved]
  - Hypotonia [Not Recovered/Not Resolved]
  - Toxicity to various agents [Unknown]
  - Drug effect incomplete [Unknown]
  - Muscular weakness [Recovering/Resolving]

NARRATIVE: CASE EVENT DATE: 201507
